FAERS Safety Report 5890875-1 (Version None)
Quarter: 2008Q3

REPORT INFORMATION
  Report Type: 
  Country: None (occurrence: None)
  Receive Date: 20080922
  Receipt Date: 20080911
  Transmission Date: 20090109
  Serious: Yes (Hospitalization)
  Sender: FDA-Public Use
  Company Number: US-JNJFOC-20080100669

PATIENT
  Sex: Male
  Weight: 124.74 kg

DRUGS (28)
  1. REMICADE [Suspect]
     Indication: PSORIATIC ARTHROPATHY
     Route: 042
  2. NEXIUM [Concomitant]
  3. HUMALOG [Concomitant]
     Route: 058
  4. LANTUS [Concomitant]
     Route: 058
  5. TOPROL-XL [Concomitant]
  6. PLAVIX [Concomitant]
  7. PROVIL [Concomitant]
  8. PROVIL [Concomitant]
  9. ALTACE [Concomitant]
  10. LIPITOR [Concomitant]
  11. CYMBALTA [Concomitant]
  12. LORAZEPAM [Concomitant]
  13. VICODEN [Concomitant]
  14. VICODEN [Concomitant]
  15. BENADRYL [Concomitant]
     Indication: PREMEDICATION
  16. TYENOL [Concomitant]
  17. DICLOFENAC SODIUM [Concomitant]
  18. TACLONEX [Concomitant]
  19. TAZORAC [Concomitant]
  20. DOVONEX [Concomitant]
  21. LIDEX [Concomitant]
  22. SINGULAIR [Concomitant]
  23. NASACORT [Concomitant]
     Dosage: 2 PUFFS
     Route: 055
  24. ETODOLAC [Concomitant]
  25. METHOTREXATE [Concomitant]
  26. METHOTREXATE [Concomitant]
  27. FOLIC ACID [Concomitant]
  28. TEMOVATE [Concomitant]

REACTIONS (3)
  - ABDOMINAL RIGIDITY [None]
  - CHEST DISCOMFORT [None]
  - INFUSION RELATED REACTION [None]
